FAERS Safety Report 5540639-3 (Version None)
Quarter: 2007Q4

REPORT INFORMATION
  Report Type: 
  Country: None (occurrence: None)
  Receive Date: 20071129
  Receipt Date: 20070718
  Transmission Date: 20080405
  Serious: Yes (Hospitalization)
  Sender: FDA-Public Use
  Company Number: US200707005252

PATIENT
  Sex: Female
  Weight: 59.9 kg

DRUGS (1)
  1. OLANZAPINE [Suspect]

REACTIONS (4)
  - BLOOD GLUCOSE DECREASED [None]
  - BLOOD GLUCOSE INCREASED [None]
  - DIABETES MELLITUS MALNUTRITION-RELATED [None]
  - WEIGHT INCREASED [None]
